FAERS Safety Report 8213148-0 (Version None)
Quarter: 2012Q1

REPORT INFORMATION
  Report Type: 
  Country: None (occurrence: None)
  Receive Date: 20120315
  Receipt Date: 20120313
  Transmission Date: 20120608
  Serious: Yes (Hospitalization)
  Sender: FDA-Public Use
  Company Number: US-PFIZER INC-2012039984

PATIENT
  Sex: Female
  Weight: 125 kg

DRUGS (1)
  1. ADVIL PM [Suspect]
     Dosage: UNK, 1X/DAY
     Route: 048
     Dates: start: 20110601, end: 20120129

REACTIONS (2)
  - CONVULSION [None]
  - ROAD TRAFFIC ACCIDENT [None]
